FAERS Safety Report 20517130 (Version 1)
Quarter: 2022Q1

REPORT INFORMATION
  Report Type: Report from Study
  Country: DE (occurrence: DE)
  Receive Date: 20220225
  Receipt Date: 20220225
  Transmission Date: 20220423
  Serious: Yes (Hospitalization, Other)
  Sender: FDA-Public Use
  Company Number: DE-ALS-000540

PATIENT
  Age: 83 Year
  Sex: Female

DRUGS (1)
  1. METFORMIN [Suspect]
     Active Substance: METFORMIN HYDROCHLORIDE
     Indication: Type 2 diabetes mellitus
     Route: 065

REACTIONS (9)
  - Circulatory collapse [Unknown]
  - Confusional state [Unknown]
  - Hypotonia [Unknown]
  - Hypothermia [Unknown]
  - Heart rate increased [Unknown]
  - Dehydration [Unknown]
  - Chills [Unknown]
  - Lactic acidosis [Unknown]
  - Renal impairment [Recovered/Resolved]
